FAERS Safety Report 8838326 (Version 1)
Quarter: 2012Q4

REPORT INFORMATION
  Report Type: 
  Country: SG (occurrence: SG)
  Receive Date: 20121012
  Receipt Date: 20121012
  Transmission Date: 20130627
  Serious: Yes (Death, Life-Threatening, Hospitalization)
  Sender: FDA-Public Use
  Company Number: PHHY2012SG089306

PATIENT
  Sex: Female

DRUGS (2)
  1. PHENYLBUTAZONE [Suspect]
     Dates: start: 2006
  2. FLUTULANG [Suspect]
     Indication: MYALGIA
     Dosage: 1 DF, UNK

REACTIONS (4)
  - Toxic epidermal necrolysis [Fatal]
  - Rash [Fatal]
  - Drug reaction with eosinophilia and systemic symptoms [Unknown]
  - Disease complication [None]
